FAERS Safety Report 25508232 (Version 1)
Quarter: 2025Q3

REPORT INFORMATION
  Report Type: Spontaneous
  Country: EU (occurrence: EU)
  Receive Date: 20250703
  Receipt Date: 20250703
  Transmission Date: 20251021
  Serious: Yes (Other)
  Sender: ASTELLAS
  Company Number: EU-ASTELLAS-2021US030091

PATIENT
  Age: 71 Year
  Sex: Male

DRUGS (2)
  1. XTANDI [Suspect]
     Active Substance: ENZALUTAMIDE
     Indication: Product used for unknown indication
     Dosage: 160 MG, ONCE DAILY
     Route: 065
     Dates: start: 202105
  2. Wobenzym [Concomitant]
     Indication: Herpes zoster
     Route: 065

REACTIONS (6)
  - Malignant neoplasm progression [Unknown]
  - Loss of libido [Unknown]
  - Prostatic specific antigen increased [Not Recovered/Not Resolved]
  - Hyperhidrosis [Unknown]
  - Restless legs syndrome [Recovered/Resolved]
  - Fatigue [Unknown]
